FAERS Safety Report 15255014 (Version 3)
Quarter: 2018Q3

REPORT INFORMATION
  Report Type: Spontaneous
  Country: DE (occurrence: DE)
  Receive Date: 20180808
  Receipt Date: 20180920
  Transmission Date: 20181010
  Serious: Yes (Other)
  Sender: FDA-Public Use
  Company Number: DE-LPDUSPRD-20181393

PATIENT
  Age: 27 Year
  Sex: Female

DRUGS (2)
  1. L?THYROXIN [Concomitant]
     Active Substance: LEVOTHYROXINE SODIUM
     Dosage: 100 MG (100 MG, 1X1)
     Route: 048
  2. FERINJECT [Suspect]
     Active Substance: FERRIC CARBOXYMALTOSE
     Dosage: 1000 MG, AFTERNOON
     Route: 041
     Dates: start: 20180711, end: 20180711

REACTIONS (4)
  - Skin reaction [Unknown]
  - Hypersensitivity [Unknown]
  - Product quality issue [Unknown]
  - Product preparation error [Unknown]

NARRATIVE: CASE EVENT DATE: 2018
